FAERS Safety Report 7156912-1 (Version None)
Quarter: 2010Q4

REPORT INFORMATION
  Report Type: 
  Country: None (occurrence: None)
  Receive Date: 20101214
  Receipt Date: 20101202
  Transmission Date: 20110411
  Serious: Yes (Hospitalization)
  Sender: FDA-Public Use
  Company Number: PHHY2010US81994

PATIENT
  Sex: Female

DRUGS (5)
  1. ZOMETA [Suspect]
  2. REVLIMID [Suspect]
     Indication: MULTIPLE MYELOMA
     Dosage: 25 MG, UNK
     Route: 048
     Dates: start: 20090501
  3. REVLIMID [Suspect]
     Dosage: 25 MG, UNK
     Route: 048
     Dates: start: 20100501
  4. DEXAMETHASONE [Concomitant]
     Indication: MULTIPLE MYELOMA
  5. XELODA [Concomitant]

REACTIONS (7)
  - BACK PAIN [None]
  - BLOOD IMMUNOGLOBULIN G DECREASED [None]
  - JAW OPERATION [None]
  - LIVER FUNCTION TEST ABNORMAL [None]
  - OSTEOMYELITIS [None]
  - OSTEONECROSIS OF JAW [None]
  - SWELLING FACE [None]
